APPROVED DRUG PRODUCT: VANCOMYCIN HYDROCHLORIDE
Active Ingredient: VANCOMYCIN HYDROCHLORIDE
Strength: EQ 1.25GM BASE/VIAL
Dosage Form/Route: POWDER;INTRAVENOUS
Application: A215324 | Product #002 | TE Code: AP
Applicant: STERISCIENCE PTE LTD
Approved: Oct 2, 2025 | RLD: No | RS: No | Type: RX